FAERS Safety Report 10932402 (Version 1)
Quarter: 2015Q1

REPORT INFORMATION
  Report Type: Spontaneous
  Country: US (occurrence: None)
  Receive Date: 20150319
  Receipt Date: 20150319
  Transmission Date: 20150721
  Serious: No
  Sender: FDA-Public Use
  Company Number: None

PATIENT
  Age: 49 Year
  Sex: Female
  Weight: 64.86 kg

DRUGS (3)
  1. VITAMIN B12 [Concomitant]
     Active Substance: CYANOCOBALAMIN
  2. CLONAZEPAM. [Concomitant]
     Active Substance: CLONAZEPAM
  3. BOTOX [Suspect]
     Active Substance: ONABOTULINUMTOXINA
     Indication: HEADACHE
     Dates: start: 20150220

REACTIONS (20)
  - Tinnitus [None]
  - Neck pain [None]
  - Headache [None]
  - Musculoskeletal pain [None]
  - Rhinorrhoea [None]
  - Oropharyngeal pain [None]
  - Mood altered [None]
  - Diplopia [None]
  - Pain [None]
  - Influenza [None]
  - Drug ineffective [None]
  - Vision blurred [None]
  - Urinary incontinence [None]
  - Photophobia [None]
  - Cough [None]
  - Speech disorder [None]
  - Hypoaesthesia [None]
  - Muscular weakness [None]
  - Back pain [None]
  - Decreased appetite [None]

NARRATIVE: CASE EVENT DATE: 20150220
